FAERS Safety Report 20332909 (Version 1)
Quarter: 2022Q1

REPORT INFORMATION
  Report Type: Spontaneous
  Country: US (occurrence: None)
  Receive Date: 20220113
  Receipt Date: 20220113
  Transmission Date: 20220424
  Serious: No
  Sender: FDA-Public Use
  Company Number: None

PATIENT
  Sex: Male

DRUGS (4)
  1. HUMIRA [Suspect]
     Active Substance: ADALIMUMAB
     Indication: Colitis ulcerative
     Dosage: OTHER FREQUENCY : BI-WEEKLY;?
  2. METOPROLOL [Concomitant]
     Active Substance: METOPROLOL
  3. LIALDA [Concomitant]
     Active Substance: MESALAMINE
  4. Simvaststin [Concomitant]

REACTIONS (2)
  - Nasopharyngitis [None]
  - Influenza [None]
